FAERS Safety Report 4588321-3 (Version None)
Quarter: 2005Q1

REPORT INFORMATION
  Report Type: 
  Country: None (occurrence: None)
  Receive Date: 20050216
  Receipt Date: 20050209
  Transmission Date: 20050727
  Serious: Yes (Life-Threatening, Hospitalization)
  Sender: FDA-Public Use
  Company Number: 2005009146

PATIENT
  Age: 75 Year
  Sex: Female

DRUGS (1)
  1. EXEMESTANE TABLET (EXEMESTANE) [Suspect]
     Indication: BREAST CANCER FEMALE
     Dosage: 25 MG (25 MG, DAILY), ORAL
     Route: 048
     Dates: start: 20031106

REACTIONS (5)
  - HELICOBACTER INFECTION [None]
  - PEPTIC ULCER HAEMORRHAGE [None]
  - SINUS ARREST [None]
  - SYNCOPE [None]
  - THROMBOSIS [None]
